FAERS Safety Report 8120181-6 (Version None)
Quarter: 2012Q1

REPORT INFORMATION
  Report Type: 
  Country: None (occurrence: None)
  Receive Date: 20120207
  Receipt Date: 20120202
  Transmission Date: 20120608
  Serious: No
  Sender: FDA-Public Use
  Company Number: US-BAYER-2012-011708

PATIENT
  Age: 58 Year
  Sex: Female
  Weight: 68 kg

DRUGS (3)
  1. ALEVE (CAPLET) [Suspect]
     Dosage: 1 TAB ONCE DAILY
     Route: 048
     Dates: start: 20050101, end: 20050101
  2. PHILLIPS' COLON HEALTH [Suspect]
     Dosage: 1 TAB ONCE DAILY
     Route: 048
     Dates: start: 20111101, end: 20120131
  3. BLOOD PRESSURE MEDICATION (NOS) [Concomitant]
     Dosage: 2 PILLS

REACTIONS (3)
  - BLOOD PRESSURE INCREASED [None]
  - FEELING JITTERY [None]
  - CONSTIPATION [None]
